FAERS Safety Report 8839182 (Version 2)
Quarter: 2013Q1

REPORT INFORMATION
  Report Type: Spontaneous
  Country: JP (occurrence: JP)
  Receive Date: 20121015
  Receipt Date: 20130107
  Transmission Date: 20140127
  Serious: Yes (Other)
  Sender: FDA-Public Use
  Company Number: JP-ELI_LILLY_AND_COMPANY-JP201210001622

PATIENT
  Age: 65 Year
  Sex: Female

DRUGS (2)
  1. GEMZAR [Suspect]
     Indication: OVARIAN CANCER
     Dosage: UNK
     Route: 042
  2. IRINOTECAN [Concomitant]
     Indication: OVARIAN CANCER

REACTIONS (2)
  - Thrombotic thrombocytopenic purpura [Unknown]
  - Haemolytic uraemic syndrome [Unknown]
